FAERS Safety Report 10969329 (Version 1)
Quarter: 2015Q1

REPORT INFORMATION
  Report Type: Spontaneous
  Country: US (occurrence: None)
  Receive Date: 20150226
  Receipt Date: 20150226
  Transmission Date: 20150721
  Serious: No
  Sender: FDA-Public Use
  Company Number: TPA2010A01285

PATIENT
  Age: 42 Year
  Sex: Male
  Weight: 113.4 kg

DRUGS (4)
  1. ULORIC [Suspect]
     Active Substance: FEBUXOSTAT
     Indication: GOUT
     Dosage: 80 MG, 1/2 TABLET QD, PER ORAL
     Route: 048
     Dates: start: 201001, end: 20100315
  2. LYSINE [Concomitant]
     Active Substance: LYSINE
  3. SIMVASTATIN. [Suspect]
     Active Substance: SIMVASTATIN
  4. FISH OIL [Concomitant]
     Active Substance: FISH OIL

REACTIONS (2)
  - Hypoaesthesia [None]
  - Muscle twitching [None]

NARRATIVE: CASE EVENT DATE: 20100310
